FAERS Safety Report 8318537-1 (Version None)
Quarter: 2012Q2

REPORT INFORMATION
  Report Type: 
  Country: None (occurrence: None)
  Receive Date: 20120427
  Receipt Date: 20120424
  Transmission Date: 20120825
  Serious: Yes (Other)
  Sender: FDA-Public Use
  Company Number: DE-GLAXOSMITHKLINE-D0075370A

PATIENT
  Age: 54 Year
  Sex: Male

DRUGS (5)
  1. L-DOPA [Concomitant]
     Indication: PARKINSON'S DISEASE
     Route: 065
  2. TASMAR [Concomitant]
     Indication: PARKINSON'S DISEASE
     Dosage: 100MG UNKNOWN
     Route: 048
  3. REQUIP [Suspect]
     Indication: PARKINSON'S DISEASE
     Route: 048
  4. NEUPRO [Concomitant]
     Indication: PARKINSON'S DISEASE
     Dosage: 4MG PER DAY
     Route: 062
  5. PK-MERZ [Concomitant]
     Indication: PARKINSON'S DISEASE
     Route: 065

REACTIONS (3)
  - THEFT [None]
  - PATHOLOGICAL GAMBLING [None]
  - IMPULSE-CONTROL DISORDER [None]
